FAERS Safety Report 10950857 (Version 2)
Quarter: 2015Q2

REPORT INFORMATION
  Report Type: Spontaneous
  Country: JP (occurrence: JP)
  Receive Date: 20150324
  Receipt Date: 20150401
  Transmission Date: 20150821
  Serious: No
  Sender: FDA-Public Use
  Company Number: JP-INTERMUNE, INC.-201503IM011927

PATIENT
  Age: 68 Year
  Sex: Male

DRUGS (4)
  1. PIRESPA (PIRFENIDONE) [Suspect]
     Active Substance: PIRFENIDONE
     Indication: IDIOPATHIC PULMONARY FIBROSIS
     Dosage: 600 MG
     Route: 048
     Dates: start: 20131004
  2. PIRESPA (PIRFENIDONE) [Suspect]
     Active Substance: PIRFENIDONE
     Dosage: 1200 MG
     Route: 048
     Dates: start: 20131018, end: 20131028
  3. PIRESPA (PIRFENIDONE) [Suspect]
     Active Substance: PIRFENIDONE
     Dosage: 1800 MG
     Route: 048
     Dates: start: 20131028, end: 20150127
  4. PIRESPA (PIRFENIDONE) [Suspect]
     Active Substance: PIRFENIDONE
     Dosage: 1200 MG
     Route: 048
     Dates: start: 20150127, end: 20150224

REACTIONS (1)
  - Liver disorder [Recovering/Resolving]

NARRATIVE: CASE EVENT DATE: 20141118
